FAERS Safety Report 5948979-0 (Version None)
Quarter: 2008Q4

REPORT INFORMATION
  Report Type: 
  Country: None (occurrence: None)
  Receive Date: 20081111
  Receipt Date: 20081105
  Transmission Date: 20090506
  Serious: Yes (Other)
  Sender: FDA-Public Use
  Company Number: US-PFIZER INC-2003119067

PATIENT
  Sex: Male
  Weight: 92 kg

DRUGS (11)
  1. INHALED HUMAN INSULIN [Suspect]
     Indication: TYPE 2 DIABETES MELLITUS
     Dosage: DAILY DOSE:24MG
     Route: 055
     Dates: start: 20030908, end: 20031115
  2. INSULIN GLARGINE [Suspect]
     Indication: TYPE 2 DIABETES MELLITUS
     Dosage: DAILY DOSE:90I.U.
     Route: 058
     Dates: start: 20030908, end: 20031123
  3. INSULIN ASPART [Suspect]
     Indication: TYPE 2 DIABETES MELLITUS
     Dosage: DAILY DOSE:80.45I.U.
     Route: 058
     Dates: start: 20031101, end: 20031111
  4. FELODIPINE [Concomitant]
     Route: 065
     Dates: start: 20000101
  5. ASPIRIN [Concomitant]
     Route: 065
     Dates: start: 19930101
  6. HYDROCHLOROTHIAZIDE [Concomitant]
     Route: 065
     Dates: start: 19980101
  7. NIASPAN [Concomitant]
     Route: 065
     Dates: start: 20030101
  8. SIMVASTATIN [Concomitant]
     Route: 065
     Dates: start: 19950101
  9. ACCUPRIL [Concomitant]
     Route: 065
     Dates: start: 19980101
  10. ATROVENT [Concomitant]
     Route: 065
     Dates: start: 19900101
  11. PREDNISONE TAB [Concomitant]
     Route: 048
     Dates: start: 20031103, end: 20031108

REACTIONS (4)
  - CHRONIC OBSTRUCTIVE PULMONARY DISEASE [None]
  - DISEASE COMPLICATION [None]
  - DISEASE RECURRENCE [None]
  - SELF-MEDICATION [None]
